FAERS Safety Report 6943471-9 (Version None)
Quarter: 2010Q3

REPORT INFORMATION
  Report Type: 
  Country: None (occurrence: None)
  Receive Date: 20100826
  Receipt Date: 20100812
  Transmission Date: 20110219
  Serious: Yes (Hospitalization, Other)
  Sender: FDA-Public Use
  Company Number: NL-GILEAD-E2B_00000749

PATIENT
  Sex: Male
  Weight: 98 kg

DRUGS (9)
  1. AMBRISENTAN [Suspect]
     Indication: PULMONARY ARTERIAL HYPERTENSION
     Dosage: 5MG PER DAY
     Route: 048
     Dates: start: 20091216
  2. SILDENAFIL [Concomitant]
     Indication: PULMONARY HYPERTENSION
     Dosage: 60MG PER DAY
     Route: 048
     Dates: start: 20090801
  3. LANOXIN [Concomitant]
  4. VERAPAMIL [Concomitant]
  5. METOPROLOL [Concomitant]
  6. HUMALOG [Concomitant]
  7. FUROSEMIDE [Concomitant]
  8. SPIRONOLACTONE [Concomitant]
  9. ETALPHA [Concomitant]

REACTIONS (2)
  - LOCALISED OEDEMA [None]
  - RENAL IMPAIRMENT [None]
